FAERS Safety Report 5140765-7 (Version None)
Quarter: 2006Q4

REPORT INFORMATION
  Report Type: 
  Country: None (occurrence: None)
  Receive Date: 20061025
  Receipt Date: 20061018
  Transmission Date: 20070319
  Serious: Yes (Other)
  Sender: FDA-Public Use
  Company Number: 2006S1000253

PATIENT
  Age: 55 Year
  Sex: Female

DRUGS (1)
  1. ACITRETIN [Suspect]
     Indication: ICHTHYOSIS
     Dosage: 25 MG; QD; PO
     Route: 048

REACTIONS (2)
  - BLOOD 25-HYDROXYCHOLECALCIFEROL DECREASED [None]
  - OSTEOCALCIN DECREASED [None]
